FAERS Safety Report 8905434 (Version 2)
Quarter: 2012Q4

REPORT INFORMATION
  Report Type: 
  Country: JP (occurrence: JP)
  Receive Date: 20121112
  Receipt Date: 20121121
  Transmission Date: 20130627
  Serious: Yes (Other)
  Sender: FDA-Public Use
  Company Number: JP-JNJFOC-20121104304

PATIENT
  Age: 7 None
  Sex: Male

DRUGS (4)
  1. TRAMCET [Suspect]
     Indication: PAIN
     Dosage: 4 doses 1 per 1 day
     Route: 048
     Dates: start: 201210, end: 20121101
  2. NEUROTROPIN [Concomitant]
     Indication: PRODUCT USED FOR UNKNOWN INDICATION
     Route: 065
  3. AMLODIPINE [Concomitant]
     Indication: PRODUCT USED FOR UNKNOWN INDICATION
     Route: 048
  4. TANATRIL [Concomitant]
     Indication: PRODUCT USED FOR UNKNOWN INDICATION
     Route: 048

REACTIONS (1)
  - Loss of consciousness [Recovered/Resolved]
